FAERS Safety Report 6269562-6 (Version None)
Quarter: 2009Q3

REPORT INFORMATION
  Report Type: 
  Country: None (occurrence: None)
  Receive Date: 20090715
  Receipt Date: 20090707
  Transmission Date: 20100115
  Serious: Yes (Other)
  Sender: FDA-Public Use
  Company Number: US-MERCK-0907USA01019

PATIENT
  Age: 70 Year
  Sex: Female

DRUGS (3)
  1. REVLIMID [Suspect]
     Indication: MULTIPLE MYELOMA
     Route: 048
     Dates: start: 20090123
  2. DECADRON [Suspect]
     Route: 065
  3. GASTROINTESTINAL PREPARATIONS (UNSPECIFIED) [Concomitant]
     Indication: REFLUX GASTRITIS
     Route: 065

REACTIONS (3)
  - ADVERSE EVENT [None]
  - HAEMOGLOBIN DECREASED [None]
  - REGURGITATION [None]
